FAERS Safety Report 6064318-1 (Version None)
Quarter: 2009Q1

REPORT INFORMATION
  Report Type: 
  Country: None (occurrence: None)
  Receive Date: 20090121
  Receipt Date: 20080505
  Transmission Date: 20090719
  Serious: Yes (Other)
  Sender: FDA-Public Use
  Company Number: HQWYE052107OCT03

PATIENT
  Age: 42 Year
  Sex: Female

DRUGS (2)
  1. PREMPHASE (PREMARIN;CYCRIN 14/14) [Suspect]
     Dosage: 0.625MG/5MG DAILY, ORAL
     Route: 048
     Dates: start: 20000723, end: 20000810
  2. PREMARIN [Suspect]

REACTIONS (1)
  - CEREBROVASCULAR ACCIDENT [None]
